FAERS Safety Report 23564460 (Version 1)
Quarter: 2024Q1

REPORT INFORMATION
  Report Type: Spontaneous
  Country: US (occurrence: None)
  Receive Date: 20240226
  Receipt Date: 20240226
  Transmission Date: 20240409
  Serious: Yes (Other)
  Sender: FDA-Public Use
  Company Number: US-Unichem Pharmaceuticals (USA) Inc-UCM202402-000145

PATIENT
  Age: 50 Year
  Sex: Male

DRUGS (4)
  1. DIVALPROEX SODIUM [Suspect]
     Active Substance: DIVALPROEX SODIUM
     Indication: Epilepsy
  2. DIVALPROEX SODIUM [Suspect]
     Active Substance: DIVALPROEX SODIUM
     Indication: Seizure
  3. Vanimidzonisamide [Concomitant]
     Indication: Product used for unknown indication
     Dosage: UNKNOWN
  4. LEVETIRACETAM [Concomitant]
     Active Substance: LEVETIRACETAM
     Indication: Product used for unknown indication
     Dosage: UNKNOWN

REACTIONS (7)
  - Seizure [Unknown]
  - Loss of consciousness [Unknown]
  - Mood swings [Unknown]
  - Aggression [Unknown]
  - Anxiety [Unknown]
  - Restlessness [Unknown]
  - Anger [Unknown]
